FAERS Safety Report 16205900 (Version 1)
Quarter: 2019Q2

REPORT INFORMATION
  Report Type: Spontaneous
  Country: OM (occurrence: OM)
  Receive Date: 20190417
  Receipt Date: 20190417
  Transmission Date: 20190711
  Serious: Yes (Other)
  Sender: FDA-Public Use
  Company Number: OM-HIKMA PHARMACEUTICALS USA INC.-OM-H14001-19-02382

PATIENT

DRUGS (2)
  1. LEVONIC (LEVOFLOXACIN) [Suspect]
     Active Substance: LEVOFLOXACIN
     Indication: PYREXIA
  2. LEVONIC (LEVOFLOXACIN) [Suspect]
     Active Substance: LEVOFLOXACIN
     Indication: ABDOMINAL PAIN
     Route: 042
     Dates: start: 20190406, end: 201904

REACTIONS (2)
  - Pruritus [Recovering/Resolving]
  - Erythema [Recovering/Resolving]
